FAERS Safety Report 8584434-X (Version None)
Quarter: 2012Q3

REPORT INFORMATION
  Report Type: 
  Country: None (occurrence: None)
  Receive Date: 20120730
  Receipt Date: 20120716
  Transmission Date: 20120928
  Serious: Yes (Other)
  Sender: FDA-Public Use
  Company Number: 2012SA050802

PATIENT
  Age: 66 Year
  Sex: Female

DRUGS (1)
  1. CAPZASIN HP CREME /UNKNOWN/UNKNOWN [Suspect]
     Dosage: ; ONCE; UNK

REACTIONS (2)
  - BLISTER [None]
  - THERMAL BURN [None]
